FAERS Safety Report 5581147-3 (Version None)
Quarter: 2007Q4

REPORT INFORMATION
  Report Type: 
  Country: None (occurrence: None)
  Receive Date: 20071130
  Receipt Date: 20070922
  Transmission Date: 20080405
  Serious: No
  Sender: FDA-Public Use
  Company Number: US200707003998

PATIENT
  Age: 56 Year
  Sex: Female

DRUGS (4)
  1. BYETTA [Suspect]
     Indication: TYPE 2 DIABETES MELLITUS
     Dosage: 5 UG, 2/D, 10 UG, 2/D, SUBCUTANEOUS
     Route: 058
     Dates: start: 20070613, end: 20070712
  2. BYETTA [Suspect]
     Indication: TYPE 2 DIABETES MELLITUS
     Dosage: 5 UG, 2/D, 10 UG, 2/D, SUBCUTANEOUS
     Route: 058
     Dates: start: 20070713
  3. GLIPIZIDE (GLLIPIZIDE) [Concomitant]
  4. ACTOS [Concomitant]

REACTIONS (4)
  - BLOOD GLUCOSE INCREASED [None]
  - DRUG EFFECT DECREASED [None]
  - GLYCOSYLATED HAEMOGLOBIN INCREASED [None]
  - WEIGHT INCREASED [None]
